FAERS Safety Report 5311751-9 (Version None)
Quarter: 2007Q2

REPORT INFORMATION
  Report Type: 
  Country: None (occurrence: None)
  Receive Date: 20070426
  Receipt Date: 20070426
  Transmission Date: 20071010
  Serious: Yes (Hospitalization)
  Sender: FDA-Public Use
  Company Number: None

PATIENT
  Age: 59 Year
  Sex: Male
  Weight: 64.8 kg

DRUGS (5)
  1. BARIUM SULFATE [Suspect]
     Indication: SCAN WITH CONTRAST
     Dosage: ORAL DOSE NOT SPECIFIED
     Route: 048
     Dates: start: 20070123
  2. LIDOCAINE [Concomitant]
  3. CODEINE PHOSPHATE AND ACETAMINOPHEN [Concomitant]
  4. DICLOFENAC [Concomitant]
  5. OMEPRAZOLE [Concomitant]

REACTIONS (6)
  - CONTRAST MEDIA ALLERGY [None]
  - FEELING HOT [None]
  - GROIN ABSCESS [None]
  - HAEMORRHOIDS [None]
  - PRURITUS [None]
  - RASH ERYTHEMATOUS [None]
